FAERS Safety Report 20730119 (Version 1)
Quarter: 2022Q2

REPORT INFORMATION
  Report Type: Spontaneous
  Country: US (occurrence: None)
  Receive Date: 20220419
  Receipt Date: 20220419
  Transmission Date: 20220720
  Serious: Yes (Hospitalization)
  Sender: FDA-Public Use
  Company Number: None

PATIENT
  Sex: Female

DRUGS (6)
  1. TOBRAMYCIN [Suspect]
     Active Substance: TOBRAMYCIN
     Indication: Pneumonia pseudomonal
     Dosage: FREQUENCY : DAILY;?
     Route: 055
     Dates: start: 20150627
  2. ATORVASTATIN [Concomitant]
     Active Substance: ATORVASTATIN
  3. DILTIAZEM [Concomitant]
     Active Substance: DILTIAZEM
  4. FUROSEMIDE [Concomitant]
     Active Substance: FUROSEMIDE
  5. MIRTAZAPINE [Concomitant]
     Active Substance: MIRTAZAPINE
  6. MONTELUKAST [Concomitant]
     Active Substance: MONTELUKAST SODIUM

REACTIONS (1)
  - Bronchitis moraxella [None]
